FAERS Safety Report 22804451 (Version 3)
Quarter: 2025Q1

REPORT INFORMATION
  Report Type: Spontaneous
  Country: US (occurrence: US)
  Receive Date: 20230809
  Receipt Date: 20250220
  Transmission Date: 20250408
  Serious: No
  Sender: PFIZER
  Company Number: US-PFIZER INC-PV202300118522

PATIENT
  Age: 87 Year
  Sex: Female
  Weight: 72.653 kg

DRUGS (3)
  1. IBRANCE [Suspect]
     Active Substance: PALBOCICLIB
     Indication: Breast cancer female
     Route: 048
     Dates: start: 20230821
  2. IBRANCE [Suspect]
     Active Substance: PALBOCICLIB
     Indication: Iron deficiency anaemia
  3. ARIMIDEX [Concomitant]
     Active Substance: ANASTROZOLE

REACTIONS (2)
  - Lymphadenopathy [Unknown]
  - Product prescribing error [Unknown]
